FAERS Safety Report 25931488 (Version 1)
Quarter: 2025Q4

REPORT INFORMATION
  Report Type: Spontaneous
  Country: US (occurrence: US)
  Receive Date: 20251016
  Receipt Date: 20251016
  Transmission Date: 20260118
  Serious: Yes (Hospitalization)
  Sender: GUERBET
  Company Number: US-GUERBET / LLC-US-20250175

PATIENT
  Age: 44 Year
  Sex: Female

DRUGS (4)
  1. LIPIODOL [Suspect]
     Active Substance: ETHIODIZED OIL
     Indication: Lymphangiogram
     Route: 027
  2. LIPIODOL [Suspect]
     Active Substance: ETHIODIZED OIL
     Indication: Therapeutic embolisation
     Dosage: TRUFILL (N-BUTYL CYANOACRYLATE GLUE) MIXED WITH AN ETHIODIZED OIL AT A RATIO OF 3:2.
     Route: 027
  3. OCTREOTIDE [Concomitant]
     Active Substance: OCTREOTIDE
     Indication: Lymphatic fistula
  4. Trufill (n-butyl cyanoacrylate glue) [Concomitant]
     Indication: Therapeutic embolisation
     Dosage: TRUFILL (N-BUTYL CYANOACRYLATE GLUE) MIXED WITH AN ETHIODIZED OIL AT A RATIO OF 3:2.

REACTIONS (2)
  - Chylothorax [Recovered/Resolved]
  - Product use in unapproved indication [Recovered/Resolved]
